FAERS Safety Report 9755536 (Version 1)
Quarter: 2013Q4

REPORT INFORMATION
  Report Type: Spontaneous
  Country: US (occurrence: US)
  Receive Date: 20131213
  Receipt Date: 20131213
  Transmission Date: 20140711
  Serious: No
  Sender: FDA-Public Use
  Company Number: US-GLAXOSMITHKLINE-A1019952A

PATIENT
  Age: 60 Year
  Sex: Female

DRUGS (1)
  1. NICODERM CQ 14MG [Suspect]
     Indication: EX-TOBACCO USER
     Dates: start: 20130401

REACTIONS (5)
  - Panic reaction [Unknown]
  - Anxiety [Unknown]
  - Drug ineffective [Unknown]
  - Crying [Unknown]
  - Anger [Unknown]
